FAERS Safety Report 10071779 (Version 1)
Quarter: 2014Q2

REPORT INFORMATION
  Report Type: Spontaneous
  Country: US (occurrence: US)
  Receive Date: 20140411
  Receipt Date: 20140411
  Transmission Date: 20141212
  Serious: Yes (Hospitalization, Other)
  Sender: FDA-Public Use
  Company Number: US-BIOGENIDEC-2014BI033868

PATIENT
  Sex: Male

DRUGS (1)
  1. TYSABRI [Suspect]
     Indication: MULTIPLE SCLEROSIS
     Route: 042
     Dates: start: 20130627

REACTIONS (11)
  - Surgery [Unknown]
  - Medical device implantation [Unknown]
  - Suture insertion [Unknown]
  - Paralysis [Unknown]
  - Hernia [Unknown]
  - Gastrointestinal disorder [Unknown]
  - Abdominal injury [Unknown]
  - General symptom [Unknown]
  - Blindness [Unknown]
  - Hypoaesthesia [Unknown]
  - Dysuria [Unknown]
